FAERS Safety Report 20449933 (Version 4)
Quarter: 2024Q2

REPORT INFORMATION
  Report Type: Spontaneous
  Country: US (occurrence: US)
  Receive Date: 20220209
  Receipt Date: 20240419
  Transmission Date: 20240716
  Serious: Yes (Other)
  Sender: FDA-Public Use
  Company Number: US-PFIZER INC-202101587532

PATIENT
  Age: 62 Year
  Sex: Female

DRUGS (1)
  1. XELJANZ [Suspect]
     Active Substance: TOFACITINIB CITRATE
     Indication: Rheumatoid arthritis
     Dosage: 5 MG, 2X/DAY
     Route: 048
     Dates: start: 2016

REACTIONS (9)
  - Swelling [Unknown]
  - Pain [Unknown]
  - Weight increased [Unknown]
  - Discouragement [Unknown]
  - Depressed mood [Unknown]
  - COVID-19 [Unknown]
  - Influenza [Unknown]
  - Intentional dose omission [Unknown]
  - Product dose omission in error [Unknown]
